FAERS Safety Report 24453351 (Version 2)
Quarter: 2024Q4

REPORT INFORMATION
  Report Type: Report from Study
  Country: US (occurrence: US)
  Receive Date: 20241017
  Receipt Date: 20241018
  Transmission Date: 20250114
  Serious: No
  Sender: ROCHE
  Company Number: US-ROCHE-3236710

PATIENT
  Age: 59 Year
  Sex: Female
  Weight: 78.2 kg

DRUGS (3)
  1. RITUXAN [Suspect]
     Active Substance: RITUXIMAB
     Indication: Arteritis
     Dosage: 10 MG
     Route: 042
  2. RITUXAN [Suspect]
     Active Substance: RITUXIMAB
     Indication: Psoriasis
  3. RITUXAN [Suspect]
     Active Substance: RITUXIMAB
     Indication: Vasculitis

REACTIONS (2)
  - Off label use [Unknown]
  - No adverse event [Unknown]
